FAERS Safety Report 9904868 (Version 1)
Quarter: 2013Q2

REPORT INFORMATION
  Report Type: Spontaneous
  Country: US (occurrence: None)
  Receive Date: 20130627
  Receipt Date: 20130627
  Transmission Date: 20140414
  Serious: No
  Sender: FDA-Public Use
  Company Number: 1000044520

PATIENT
  Age: 57 Year
  Sex: Male

DRUGS (13)
  1. LINZESS (LINACLOTIDE) (145 MICROGRAM, CAPSULES) [Suspect]
     Indication: CONSTIPATION
     Dosage: 145 MCG (145 MCG,1 IN 1 D),ORAL
     Route: 048
     Dates: start: 20130315, end: 20130412
  2. DILANTIN (PHENYTOIN) (PHENYTOIN) [Concomitant]
  3. LACTULOS (LACTULOSE) (LACTULOSE) [Concomitant]
  4. MIRALAX (POLYETHYLENE GLYCOL) (POLYETHYLENE GLYCOL)? [Concomitant]
  5. DOXAZOSIN (DOXAZOSIN) (DOXAZOSIN) [Concomitant]
  6. CLONIDINE (CLONIDINE) (CLONIDINE) [Concomitant]
  7. HYDROCHLOROTHIAZIDE (HYDROCHLOROTHIAZIDE) (HYDROCHLOROTHIAZIDE)? [Concomitant]
  8. LISINOPRIL (LISINOPRIL) (LISINOPRIL) [Concomitant]
  9. NEXIUM (ESOMEPRAZOLE) (ESOMEPRAZOLE) [Concomitant]
  10. POTASSIUM (POTASSIUM) (POTASSIUM) [Concomitant]
  11. KEPPRA (LEVETIRACETAM) (LEVETIRACETAM) [Concomitant]
  12. SIMVASTATIN (SIMVASTATIN) (SIMVASTATIN) [Concomitant]
  13. VITAMIN E (VITAMIN E) (VITAMIN E) [Concomitant]

REACTIONS (1)
  - Faecal incontinence [None]
